FAERS Safety Report 13821658 (Version 2)
Quarter: 2017Q4

REPORT INFORMATION
  Report Type: Spontaneous
  Country: PT (occurrence: PT)
  Receive Date: 20170801
  Receipt Date: 20171107
  Transmission Date: 20180320
  Serious: Yes (Hospitalization)
  Sender: FDA-Public Use
  Company Number: PT-AUROBINDO-AUR-APL-2017-38192

PATIENT
  Age: 5 Year
  Sex: Male

DRUGS (1)
  1. CEFUROXIME. [Suspect]
     Active Substance: CEFUROXIME
     Indication: PRODUCT USED FOR UNKNOWN INDICATION
     Route: 065

REACTIONS (3)
  - C-reactive protein increased [Unknown]
  - Neutrophilia [Unknown]
  - Drug intolerance [Unknown]
